FAERS Safety Report 9123825 (Version 1)
Quarter: 2013Q1

REPORT INFORMATION
  Report Type: Spontaneous
  Country: AR (occurrence: AR)
  Receive Date: 20130227
  Receipt Date: 20130227
  Transmission Date: 20140127
  Serious: Yes (Hospitalization)
  Sender: FDA-Public Use
  Company Number: PHHY2013AR017883

PATIENT
  Age: 74 Year
  Sex: Female

DRUGS (1)
  1. ACLASTA [Suspect]
     Indication: OSTEOPOROSIS
     Dosage: 1 AMPOULE
     Route: 042
     Dates: start: 20110915

REACTIONS (6)
  - Muscle contracture [Recovering/Resolving]
  - Abasia [Unknown]
  - Blood pressure increased [Recovering/Resolving]
  - Wrong technique in drug usage process [Unknown]
  - Nervousness [Not Recovered/Not Resolved]
  - Palpitations [Not Recovered/Not Resolved]
